FAERS Safety Report 9467353 (Version 1)
Quarter: 2013Q3

REPORT INFORMATION
  Report Type: Spontaneous
  Country: US (occurrence: US)
  Receive Date: 20130821
  Receipt Date: 20130821
  Transmission Date: 20140515
  Serious: Yes (Hospitalization, Other)
  Sender: FDA-Public Use
  Company Number: US-BRISTOL-MYERS SQUIBB COMPANY-19195007

PATIENT
  Age: 71 Year
  Sex: Female
  Weight: 58.96 kg

DRUGS (6)
  1. ONGLYZA TABS 5 MG [Suspect]
     Indication: DIABETES MELLITUS
     Route: 048
     Dates: start: 200710
  2. CRESTOR [Suspect]
     Indication: BLOOD CHOLESTEROL INCREASED
     Route: 048
     Dates: start: 200710
  3. SYNTHROID [Concomitant]
     Route: 048
     Dates: start: 1985
  4. CARVEDILOL [Concomitant]
     Route: 048
     Dates: start: 200710
  5. CLOPIDOGREL BISULFATE [Concomitant]
     Route: 048
     Dates: start: 200710
  6. PANTOPRAZOLE [Concomitant]
     Route: 048
     Dates: start: 200811

REACTIONS (8)
  - Accident [Unknown]
  - Haemorrhagic stroke [Unknown]
  - Atrial fibrillation [Unknown]
  - Macular degeneration [Unknown]
  - Breast cancer [Recovered/Resolved]
  - Myalgia [Not Recovered/Not Resolved]
  - Bone pain [Not Recovered/Not Resolved]
  - Pharyngo-oesophageal diverticulum [Unknown]
